FAERS Safety Report 10523610 (Version 3)
Quarter: 2014Q4

REPORT INFORMATION
  Report Type: Spontaneous
  Country: IT (occurrence: IT)
  Receive Date: 20141017
  Receipt Date: 20141104
  Transmission Date: 20150528
  Serious: Yes (Hospitalization)
  Sender: FDA-Public Use
  Company Number: IT-ROCHE-1474606

PATIENT
  Age: 59 Year
  Sex: Male

DRUGS (6)
  1. VOLTAREN [Interacting]
     Active Substance: DICLOFENAC SODIUM
     Indication: MYALGIA
     Dosage: 75 MG/3ML, AS REQUIRED
     Route: 030
     Dates: start: 20140929, end: 20141008
  2. LIXIDOL [Suspect]
     Active Substance: KETOROLAC TROMETHAMINE
     Indication: MYALGIA
     Route: 048
     Dates: start: 20140929, end: 20141008
  3. COCAINE [Concomitant]
     Active Substance: COCAINE
  4. CIPROXIN [Interacting]
     Active Substance: CIPROFLOXACIN
     Indication: PNEUMONIA
     Route: 048
     Dates: start: 20141001, end: 20141008
  5. TORADOL [Interacting]
     Active Substance: KETOROLAC TROMETHAMINE
     Indication: MYALGIA
     Route: 048
     Dates: start: 20140929, end: 20141008
  6. AULIN [Interacting]
     Active Substance: NIMESULIDE
     Indication: MYALGIA
     Route: 048
     Dates: start: 20140929, end: 20141008

REACTIONS (6)
  - Coma [Unknown]
  - Respiratory failure [Unknown]
  - Drug abuse [Unknown]
  - Epilepsy [Unknown]
  - Drug interaction [Unknown]
  - Vomiting [Unknown]

NARRATIVE: CASE EVENT DATE: 20141008
